FAERS Safety Report 11965567 (Version 1)
Quarter: 2016Q1

REPORT INFORMATION
  Report Type: Spontaneous
  Country: US (occurrence: None)
  Receive Date: 20160125
  Receipt Date: 20160125
  Transmission Date: 20160526
  Serious: Yes (Life-Threatening, Disabling, Other)
  Sender: FDA-Public Use
  Company Number: None

PATIENT
  Age: 32 Year
  Sex: Male
  Weight: 71.22 kg

DRUGS (3)
  1. SYNTHROID [Concomitant]
     Active Substance: LEVOTHYROXINE SODIUM
  2. OPTIMARK [Suspect]
     Active Substance: GADOVERSETAMIDE
  3. CENTRUM SILVER MUTLIVITAMIN [Concomitant]

REACTIONS (10)
  - Skin lesion [None]
  - Feeling abnormal [None]
  - Contrast media reaction [None]
  - Visual impairment [None]
  - Abasia [None]
  - Asthenia [None]
  - Rash [None]
  - Myalgia [None]
  - Vision blurred [None]
  - Musculoskeletal stiffness [None]

NARRATIVE: CASE EVENT DATE: 20151113
